FAERS Safety Report 21369683 (Version 1)
Quarter: 2022Q3

REPORT INFORMATION
  Report Type: Spontaneous
  Country: US (occurrence: None)
  Receive Date: 20220922
  Receipt Date: 20220922
  Transmission Date: 20221027
  Serious: Yes (Other)
  Sender: FDA-Public Use
  Company Number: None

PATIENT
  Age: 33 Year
  Sex: Female
  Weight: 96.3 kg

DRUGS (1)
  1. BUPRENORPHINE\NALOXONE [Suspect]
     Active Substance: BUPRENORPHINE\NALOXONE
     Indication: Drug use disorder
     Dates: start: 20190208

REACTIONS (4)
  - Tooth fracture [None]
  - Tooth fracture [None]
  - Dental caries [None]
  - Tooth abscess [None]

NARRATIVE: CASE EVENT DATE: 20190809
